FAERS Safety Report 7494584-7 (Version None)
Quarter: 2011Q2

REPORT INFORMATION
  Report Type: 
  Country: None (occurrence: None)
  Receive Date: 20110520
  Receipt Date: 20110511
  Transmission Date: 20111010
  Serious: Yes (Hospitalization)
  Sender: FDA-Public Use
  Company Number: PHHY2010DE81034

PATIENT
  Age: 50 Year
  Sex: Male
  Weight: 95 kg

DRUGS (2)
  1. EXFORGE HCT [Suspect]
     Indication: HYPERTENSION
     Dosage: 320 MG OF VALSARTAN, 10 MG OF AMLODIPINE AND 25 MG OF HYDROCHOLOROTHIAZIDE, ONCE DAILY
     Route: 048
     Dates: start: 20100601, end: 20101109
  2. CYNT [Concomitant]

REACTIONS (15)
  - URTICARIA [None]
  - ANAPHYLACTIC REACTION [None]
  - ANGIOEDEMA [None]
  - SWOLLEN TONGUE [None]
  - ODYNOPHAGIA [None]
  - DYSARTHRIA [None]
  - SWELLING [None]
  - LIP SWELLING [None]
  - LOCAL SWELLING [None]
  - DYSPHAGIA [None]
  - DYSPNOEA [None]
  - RESPIRATORY DISORDER [None]
  - PRURITUS [None]
  - STRIDOR [None]
  - HYPOTENSION [None]
